FAERS Safety Report 8624299-0 (Version None)
Quarter: 2012Q3

REPORT INFORMATION
  Report Type: 
  Country: None (occurrence: None)
  Receive Date: 20120827
  Receipt Date: 20120816
  Transmission Date: 20120928
  Serious: Yes (Other)
  Sender: FDA-Public Use
  Company Number: CN-ASTRAZENECA-2012SE61100

PATIENT
  Age: 26283 Day
  Sex: Female
  Weight: 70 kg

DRUGS (2)
  1. NIMODIPINE [Suspect]
     Route: 065
  2. NEXIUM [Suspect]
     Indication: GASTRIC ULCER
     Route: 048
     Dates: start: 20110318, end: 20110420

REACTIONS (5)
  - LOSS OF CONSCIOUSNESS [None]
  - GENERALISED OEDEMA [None]
  - VERTIGO [None]
  - PRURITUS GENERALISED [None]
  - FALL [None]
